FAERS Safety Report 15304935 (Version 1)
Quarter: 2018Q3

REPORT INFORMATION
  Report Type: Spontaneous
  Country: US (occurrence: US)
  Receive Date: 20180822
  Receipt Date: 20180822
  Transmission Date: 20181010
  Serious: Yes (Other)
  Sender: FDA-Public Use
  Company Number: US-PRINSTON PHARMACEUTICAL INC.-2018PRN00823

PATIENT
  Sex: Female

DRUGS (1)
  1. VALSARTAN. [Suspect]
     Active Substance: VALSARTAN
     Indication: HYPERTENSION
     Dosage: 160 MG, 1X/DAY
     Route: 048
     Dates: start: 20180321, end: 2018

REACTIONS (5)
  - Disorientation [Recovered/Resolved]
  - Eructation [Recovered/Resolved]
  - Cholecystitis [Recovered/Resolved]
  - Feeling abnormal [Recovered/Resolved]
  - Biliary colic [Recovered/Resolved]

NARRATIVE: CASE EVENT DATE: 201803
